FAERS Safety Report 15944843 (Version 6)
Quarter: 2019Q3

REPORT INFORMATION
  Report Type: Report from Study
  Country: US (occurrence: US)
  Receive Date: 20190211
  Receipt Date: 20190828
  Transmission Date: 20191004
  Serious: Yes (Death, Hospitalization, Other)
  Sender: FDA-Public Use
  Company Number: US-GILEAD-2019-0389753

PATIENT
  Age: 65 Year
  Sex: Female

DRUGS (3)
  1. REMODULIN [Suspect]
     Active Substance: TREPROSTINIL
     Indication: PRODUCT USED FOR UNKNOWN INDICATION
     Dosage: 74 NG, QD
     Route: 065
  2. ADCIRCA [Concomitant]
     Active Substance: TADALAFIL
  3. AMBRISENTAN [Suspect]
     Active Substance: AMBRISENTAN
     Indication: PULMONARY HYPERTENSION
     Dosage: 10 MG, QD
     Route: 065
     Dates: start: 20090306

REACTIONS (9)
  - Gastroenteritis viral [Recovered/Resolved]
  - Infection [Unknown]
  - Post procedural complication [Not Recovered/Not Resolved]
  - Death [Fatal]
  - Peripheral artery occlusion [Unknown]
  - Hypotension [Unknown]
  - Toe amputation [Unknown]
  - Sepsis [Unknown]
  - Bradycardia [Unknown]

NARRATIVE: CASE EVENT DATE: 20190423
